FAERS Safety Report 9334269 (Version 1)
Quarter: 2013Q2

REPORT INFORMATION
  Report Type: Spontaneous
  Country: HU (occurrence: None)
  Receive Date: 20130604
  Receipt Date: 20130604
  Transmission Date: 20140414
  Serious: Yes (Hospitalization)
  Sender: FDA-Public Use
  Company Number: FK201301727

PATIENT
  Age: 63 Year
  Sex: 0

DRUGS (1)
  1. METHYLPREDNISOLONE [Suspect]
     Indication: PULMONARY SARCOIDOSIS

REACTIONS (6)
  - Malacoplakia gastrointestinal [None]
  - Abdominal wall abscess [None]
  - Haematuria [None]
  - Proteinuria [None]
  - Fistula [None]
  - Escherichia test positive [None]
